FAERS Safety Report 5349351-7 (Version None)
Quarter: 2007Q2

REPORT INFORMATION
  Report Type: 
  Country: None (occurrence: None)
  Receive Date: 20070605
  Receipt Date: 20070521
  Transmission Date: 20071010
  Serious: Yes (Death, Other)
  Sender: FDA-Public Use
  Company Number: GXKR2007US04496

PATIENT
  Age: 66 Year
  Sex: Male

DRUGS (4)
  1. CYCLOSPORINE [Suspect]
     Indication: HEART TRANSPLANT
     Dosage: SEE IMAGE
  2. SIMVASTATIN [Suspect]
     Dosage: SEE IMAGE
  3. COLCHICUM JTL LIQ [Suspect]
     Indication: GOUT
     Dosage: SEE IMAGE
  4. MYCOPHENOLATE MOFETIL [Concomitant]

REACTIONS (7)
  - DRUG INTERACTION [None]
  - MUSCULAR WEAKNESS [None]
  - MYALGIA [None]
  - MYOPATHY [None]
  - OPHTHALMOPLEGIA [None]
  - QUADRIPLEGIA [None]
  - SEPSIS [None]
